FAERS Safety Report 6334736-2 (Version None)
Quarter: 2009Q3

REPORT INFORMATION
  Report Type: 
  Country: None (occurrence: None)
  Receive Date: 20090831
  Receipt Date: 20090820
  Transmission Date: 20100115
  Serious: Yes (Death)
  Sender: FDA-Public Use
  Company Number: IE-PFIZER INC-2009223965

PATIENT
  Age: 66 Year

DRUGS (1)
  1. ECALTA [Suspect]

REACTIONS (2)
  - ESCHERICHIA SEPSIS [None]
  - PNEUMONIA [None]
